FAERS Safety Report 11021213 (Version 1)
Quarter: 2015Q2

REPORT INFORMATION
  Report Type: Spontaneous
  Country: US (occurrence: US)
  Receive Date: 20150413
  Receipt Date: 20150413
  Transmission Date: 20150821
  Serious: No
  Sender: FDA-Public Use
  Company Number: US-BAYER-2015-122337

PATIENT
  Age: 83 Year
  Sex: Female
  Weight: 50 kg

DRUGS (5)
  1. CLARITIN [Suspect]
     Active Substance: LORATADINE
     Indication: EYE PRURITUS
     Dosage: 1 DF, PRN
     Route: 048
     Dates: start: 201504
  2. LYCOPENE [Concomitant]
     Active Substance: LYCOPENE
     Dosage: UNK
  3. CLARITIN [Suspect]
     Active Substance: LORATADINE
     Indication: LACRIMATION INCREASED
     Dosage: 1/2 DF, PRN
     Route: 048
     Dates: start: 201504
  4. METOPROLOL [Concomitant]
     Active Substance: METOPROLOL
     Dosage: UNK
  5. VISINE [Concomitant]
     Active Substance: TETRAHYDROZOLINE HYDROCHLORIDE
     Dosage: UNK

REACTIONS (2)
  - Incorrect dose administered [None]
  - Dizziness [Recovered/Resolved]

NARRATIVE: CASE EVENT DATE: 201504
